FAERS Safety Report 16483746 (Version 2)
Quarter: 2019Q2

REPORT INFORMATION
  Report Type: Spontaneous
  Country: US (occurrence: US)
  Receive Date: 20190627
  Receipt Date: 20190628
  Transmission Date: 20190711
  Serious: Yes (Life-Threatening, Hospitalization, Other)
  Sender: FDA-Public Use
  Company Number: US-ABBVIE-19K-163-2832998-00

PATIENT
  Age: 9 Year
  Sex: Female
  Weight: 78.45 kg

DRUGS (1)
  1. LUPRON DEPOT-PED [Suspect]
     Active Substance: LEUPROLIDE ACETATE
     Indication: PRECOCIOUS PUBERTY
     Route: 030
     Dates: start: 201608, end: 201801

REACTIONS (7)
  - Suicidal ideation [Recovering/Resolving]
  - Depressed mood [Unknown]
  - Hallucination, auditory [Recovering/Resolving]
  - Mood swings [Recovering/Resolving]
  - Self-injurious ideation [Recovering/Resolving]
  - Psychotic disorder [Unknown]
  - Major depression [Unknown]

NARRATIVE: CASE EVENT DATE: 201803
